FAERS Safety Report 23570044 (Version 1)
Quarter: 2024Q1

REPORT INFORMATION
  Report Type: Spontaneous
  Country: US (occurrence: US)
  Receive Date: 20240227
  Receipt Date: 20240227
  Transmission Date: 20240409
  Serious: No
  Sender: FDA-Public Use
  Company Number: US-APELLIS-00982

PATIENT
  Age: 62 Year
  Sex: Female

DRUGS (5)
  1. EMPAVELI [Suspect]
     Active Substance: PEGCETACOPLAN
     Indication: Paroxysmal nocturnal haemoglobinuria
     Dosage: 1080 MG 0.5 WEEKS
     Route: 058
     Dates: start: 20211004
  2. EMPAVELI [Suspect]
     Active Substance: PEGCETACOPLAN
     Dosage: 1080 MILLIGRAM, TWICE WEEKLY
     Route: 058
  3. EMPAVELI [Suspect]
     Active Substance: PEGCETACOPLAN
     Dosage: 1080 MILLIGRAM, TWICE WEEKLY
     Route: 058
     Dates: start: 20211101
  4. FOLIC ACID [Concomitant]
     Active Substance: FOLIC ACID
     Indication: Product used for unknown indication
  5. JADENU [Concomitant]
     Active Substance: DEFERASIROX
     Indication: Product used for unknown indication

REACTIONS (16)
  - Haemoglobin decreased [Unknown]
  - Infusion site discolouration [Unknown]
  - Hot flush [Recovered/Resolved]
  - Neck pain [Recovered/Resolved]
  - Eye swelling [Recovered/Resolved]
  - Pruritus [Recovered/Resolved]
  - Paraesthesia [Recovered/Resolved]
  - Ocular hyperaemia [Recovered/Resolved]
  - Back pain [Recovered/Resolved]
  - Abdominal pain upper [Recovered/Resolved]
  - Infusion site bruising [Recovered/Resolved]
  - Infusion site swelling [Unknown]
  - COVID-19 [Unknown]
  - Headache [Recovered/Resolved]
  - Infusion related reaction [Recovered/Resolved]
  - Injection site haemorrhage [Recovered/Resolved]

NARRATIVE: CASE EVENT DATE: 20211004
